FAERS Safety Report 8774076 (Version 2)
Quarter: 2012Q4

REPORT INFORMATION
  Report Type: 
  Country: US (occurrence: US)
  Receive Date: 20120830
  Receipt Date: 20121008
  Transmission Date: 20130627
  Serious: Yes (Other)
  Sender: FDA-Public Use
  Company Number: US-PFIZER INC-2012210389

PATIENT
  Age: 93 Year
  Sex: Female
  Weight: 68.93 kg

DRUGS (2)
  1. ROBITUSSIN COUGH AND CHEST CONGESTION SUGAR FREE DM [Suspect]
     Indication: COUGH
     Dosage: UNK
     Route: 048
     Dates: start: 20120826
  2. ROBITUSSIN COUGH AND CHEST CONGESTION SUGAR FREE DM [Suspect]
     Indication: UPPER-AIRWAY COUGH SYNDROME

REACTIONS (1)
  - Blood glucose increased [Unknown]
